FAERS Safety Report 10082947 (Version 1)
Quarter: 2014Q2

REPORT INFORMATION
  Report Type: Spontaneous
  Country: CN (occurrence: CN)
  Receive Date: 20140417
  Receipt Date: 20140417
  Transmission Date: 20141212
  Serious: Yes (Other)
  Sender: FDA-Public Use
  Company Number: CN-GILEAD-2014-0099820

PATIENT
  Age: 26 Year
  Sex: Male

DRUGS (3)
  1. HEPSERA [Suspect]
     Indication: HEPATITIS B
     Dosage: 1TAB PER DAY
     Route: 048
     Dates: start: 201305
  2. HEPSERA [Suspect]
     Dosage: 1 UNK, UNK
     Route: 048
     Dates: start: 201205, end: 201301
  3. HEPTODIN [Suspect]
     Indication: HEPATITIS B
     Dosage: 1TAB PER DAY
     Route: 048
     Dates: start: 201301

REACTIONS (3)
  - Drug resistance [Not Recovered/Not Resolved]
  - Hepatitis B DNA increased [Not Recovered/Not Resolved]
  - Malaise [Not Recovered/Not Resolved]
